FAERS Safety Report 8621426-6 (Version None)
Quarter: 2012Q3

REPORT INFORMATION
  Report Type: 
  Country: None (occurrence: None)
  Receive Date: 20120824
  Receipt Date: 20120822
  Transmission Date: 20120928
  Serious: No
  Sender: FDA-Public Use
  Company Number: US-PFIZER INC-2012207076

PATIENT
  Age: 67 Year
  Sex: Female

DRUGS (2)
  1. ATORVASTATIN CALCIUM [Suspect]
     Dosage: 10 MG, UNK
  2. PRAVASTATIN SODIUM [Suspect]
     Dosage: UNK

REACTIONS (2)
  - HEADACHE [None]
  - PAIN IN EXTREMITY [None]
